FAERS Safety Report 4280465-9 (Version None)
Quarter: 2004Q1

REPORT INFORMATION
  Report Type: 
  Country: None (occurrence: None)
  Receive Date: 20040127
  Receipt Date: 20040102
  Transmission Date: 20041129
  Serious: Yes (Hospitalization)
  Sender: FDA-Public Use
  Company Number: FI-JNJFOC-20031204471

PATIENT
  Age: 83 Year
  Sex: Male

DRUGS (10)
  1. GALANTAMINE (GALANTAMINE) TABLETS [Suspect]
     Indication: DEMENTIA ALZHEIMER'S TYPE
     Dates: start: 20030430
  2. POTASSIUM CHLORIDE [Concomitant]
  3. SPESICOR (METOPROLOL TARTRATE) [Concomitant]
  4. CAPTOPRIL [Concomitant]
  5. TENOX (TEMAZEPAM) [Concomitant]
  6. IIMODIUM (LOPERAMIDE HYDROCHLORIDE) CAPSULES [Concomitant]
  7. AMOXICILLIN [Concomitant]
  8. DIIGOZIN (DIGOXIN) [Concomitant]
  9. WARFARIN SODIUM [Concomitant]
  10. FUROSEMIDE [Concomitant]

REACTIONS (1)
  - RESPIRATORY TRACT INFECTION [None]
